FAERS Safety Report 7432820-3 (Version None)
Quarter: 2011Q2

REPORT INFORMATION
  Report Type: 
  Country: None (occurrence: None)
  Receive Date: 20110422
  Receipt Date: 20110413
  Transmission Date: 20111010
  Serious: Yes (Hospitalization, Other)
  Sender: FDA-Public Use
  Company Number: CA-ASTRAZENECA-2011SE21471

PATIENT
  Sex: Female

DRUGS (1)
  1. CRESTOR [Suspect]
     Route: 048

REACTIONS (5)
  - BLOOD AMYLASE INCREASED [None]
  - DRUG DOSE OMISSION [None]
  - CARDIAC OPERATION [None]
  - PANCREATITIS [None]
  - MYALGIA [None]
